FAERS Safety Report 10619750 (Version 1)
Quarter: 2014Q4

REPORT INFORMATION
  Report Type: Spontaneous
  Country: GB (occurrence: None)
  Receive Date: 20141126
  Receipt Date: 20141126
  Transmission Date: 20150529
  Serious: Yes (Other)
  Sender: FDA-Public Use
  Company Number: GB-ALKEM-000764

PATIENT
  Age: 74 Year
  Sex: Female

DRUGS (7)
  1. ATROVENT [Concomitant]
     Active Substance: IPRATROPIUM BROMIDE
  2. SYMBICORT [Concomitant]
     Active Substance: BUDESONIDE\FORMOTEROL FUMARATE DIHYDRATE
  3. CEPHALEXIN. [Suspect]
     Active Substance: CEPHALEXIN
     Indication: INFECTION PROPHYLAXIS
     Route: 048
  4. OMEPRAZOLE (OMEPRAZOLE) [Concomitant]
     Active Substance: OMEPRAZOLE
  5. BRICANYL [Concomitant]
     Active Substance: TERBUTALINE SULFATE
  6. TRIMETHOPRIM (TRIMETHOPRIM) [Suspect]
     Active Substance: TRIMETHOPRIM
     Indication: INFECTION PROPHYLAXIS
     Route: 048
  7. SALBUTAMOL (SALBUTAMOL) [Concomitant]
     Active Substance: ALBUTEROL

REACTIONS (14)
  - Depression [None]
  - Dizziness [None]
  - Paraesthesia [None]
  - Skin disorder [None]
  - Pruritus [None]
  - Sleep disorder [None]
  - Arthralgia [None]
  - Tremor [None]
  - Cough [None]
  - Gastric disorder [None]
  - Renal cyst [None]
  - Myalgia [None]
  - Anxiety [None]
  - Asthenia [None]
